FAERS Safety Report 25158404 (Version 1)
Quarter: 2025Q2

REPORT INFORMATION
  Report Type: Spontaneous
  Country: US (occurrence: US)
  Receive Date: 20250404
  Receipt Date: 20250404
  Transmission Date: 20250716
  Serious: No
  Sender: COLLEGIUM PHARMACEUTICAL
  Company Number: US-SHIONOGUS-20240700569

PATIENT

DRUGS (1)
  1. SYMPROIC [Suspect]
     Active Substance: NALDEMEDINE TOSYLATE
     Indication: Product used for unknown indication
     Route: 065

REACTIONS (2)
  - Product dose omission issue [Unknown]
  - Inability to afford medication [Unknown]

NARRATIVE: CASE EVENT DATE: 20240701
